FAERS Safety Report 14012856 (Version 2)
Quarter: 2017Q4

REPORT INFORMATION
  Report Type: Spontaneous
  Country: US (occurrence: US)
  Receive Date: 20170926
  Receipt Date: 20171120
  Transmission Date: 20180321
  Serious: No
  Sender: FDA-Public Use
  Company Number: US-FRESENIUS KABI-FK201707806

PATIENT
  Age: 60 Year
  Sex: Female
  Weight: 71.28 kg

DRUGS (3)
  1. NUTRALIPID [Concomitant]
     Indication: SHORT-BOWEL SYNDROME
     Route: 041
     Dates: end: 201704
  2. SMOFLIPID [Suspect]
     Active Substance: FISH OIL\MEDIUM-CHAIN TRIGLYCERIDES\OLIVE OIL\SOYBEAN OIL
     Indication: SHORT-BOWEL SYNDROME
     Route: 041
     Dates: start: 201704, end: 20170802
  3. SMOFLIPID [Suspect]
     Active Substance: FISH OIL\MEDIUM-CHAIN TRIGLYCERIDES\OLIVE OIL\SOYBEAN OIL
     Route: 041
     Dates: start: 20170802, end: 20170821

REACTIONS (5)
  - Skin exfoliation [Recovered/Resolved]
  - Fatty acid deficiency [Recovering/Resolving]
  - Pruritus [Recovering/Resolving]
  - Skin disorder [Recovered/Resolved]
  - Formication [Recovering/Resolving]

NARRATIVE: CASE EVENT DATE: 201708
